FAERS Safety Report 8230789-5 (Version None)
Quarter: 2012Q1

REPORT INFORMATION
  Report Type: 
  Country: None (occurrence: None)
  Receive Date: 20120323
  Receipt Date: 20120315
  Transmission Date: 20120608
  Serious: Yes (Death)
  Sender: FDA-Public Use
  Company Number: DO-PFIZER INC-2012073365

PATIENT
  Age: 69 Year
  Sex: Female

DRUGS (2)
  1. PANTOPRAZOLE [Suspect]
     Dosage: 20 MG, UNK
  2. PANTOPRAZOLE [Suspect]
     Dosage: 40 MG, UNK

REACTIONS (1)
  - HEPATIC CIRRHOSIS [None]
